FAERS Safety Report 23098986 (Version 1)
Quarter: 2023Q4

REPORT INFORMATION
  Report Type: Report from Study
  Country: FR (occurrence: FR)
  Receive Date: 20231024
  Receipt Date: 20231024
  Transmission Date: 20240110
  Serious: Yes (Other)
  Sender: FDA-Public Use
  Company Number: FR-UCBSA-2023050290

PATIENT
  Age: 9 Year
  Sex: Female
  Weight: 26 kg

DRUGS (13)
  1. FINTEPLA [Suspect]
     Active Substance: FENFLURAMINE
     Indication: Severe myoclonic epilepsy of infancy
     Dosage: 3.4 MILLIGRAM, ONCE DAILY (QD)
     Dates: start: 20170718
  2. TOPIRAMATE [Concomitant]
     Active Substance: TOPIRAMATE
     Indication: Product used for unknown indication
     Dosage: 1.76 MILLIGRAM/KILOGRAM, ONCE DAILY (QD)
     Dates: start: 2013
  3. TOPIRAMATE [Concomitant]
     Active Substance: TOPIRAMATE
     Dosage: 0.84 MILLIGRAM/KILOGRAM, ONCE DAILY (QD)
  4. TOPIRAMATE [Concomitant]
     Active Substance: TOPIRAMATE
     Dosage: 0.81 MILLIGRAM/KILOGRAM, ONCE DAILY (QD)
  5. TOPIRAMATE [Concomitant]
     Active Substance: TOPIRAMATE
     Dosage: 0.76 MILLIGRAM/KILOGRAM, ONCE DAILY (QD)
  6. STIRIPENTOL [Concomitant]
     Active Substance: STIRIPENTOL
     Indication: Product used for unknown indication
     Dosage: 44.11 MILLIGRAM/KILOGRAM, ONCE DAILY (QD)
     Dates: start: 2013, end: 20180102
  7. VALPROATE [Concomitant]
     Active Substance: VALPROIC ACID
     Indication: Product used for unknown indication
     Dosage: 23.5 MILLIGRAM/KILOGRAM
     Dates: start: 2013
  8. VALPROATE [Concomitant]
     Active Substance: VALPROIC ACID
     Dosage: 29.5 MILLIGRAM/KILOGRAM, ONCE DAILY (QD)
  9. VALPROATE [Concomitant]
     Active Substance: VALPROIC ACID
     Dosage: 28.5 MILLIGRAM/KILOGRAM, ONCE DAILY (QD)
  10. VALPROATE [Concomitant]
     Active Substance: VALPROIC ACID
     Dosage: 30.7 MILLIGRAM/KILOGRAM, ONCE DAILY (QD)
  11. CLOBAZAM [Concomitant]
     Active Substance: CLOBAZAM
     Indication: Product used for unknown indication
     Dosage: 0.31 MILLIGRAM/KILOGRAM, ONCE DAILY (QD)
  12. CLOBAZAM [Concomitant]
     Active Substance: CLOBAZAM
     Dosage: 0.3 MILLIGRAM/KILOGRAM, ONCE DAILY (QD)
  13. CLOBAZAM [Concomitant]
     Active Substance: CLOBAZAM
     Dosage: 0.29 MILLIGRAM/KILOGRAM, ONCE DAILY (QD)

REACTIONS (2)
  - Seizure [Unknown]
  - Medical diet [Unknown]
